FAERS Safety Report 4686019-4 (Version None)
Quarter: 2005Q2

REPORT INFORMATION
  Report Type: 
  Country: None (occurrence: None)
  Receive Date: 20050606
  Receipt Date: 20050519
  Transmission Date: 20051028
  Serious: Yes (Death, Life-Threatening)
  Sender: FDA-Public Use
  Company Number: 11105

PATIENT
  Age: 9 Year
  Sex: Female

DRUGS (16)
  1. DAUNORUBICIN [Suspect]
     Dosage: 60 MG IV
     Route: 042
     Dates: start: 20040409
  2. CYTARABINE [Suspect]
     Dosage: 230 MG IV
     Route: 042
     Dates: start: 20040409, end: 20040412
  3. METHOTREXATE [Suspect]
     Dosage: 12 MG ONCE INJ
     Dates: start: 20040406, end: 20040406
  4. VANCOMYCIN HYDROCHLORIDE [Suspect]
     Indication: AGRANULOCYTOSIS
     Dosage: 2 G INJ
     Dates: start: 20040410
  5. TOBRAMYCIN [Suspect]
     Indication: AGRANULOCYTOSIS
     Dosage: 210 MG INJ
     Dates: start: 20040406, end: 20040410
  6. TEICOPLANIN [Suspect]
     Indication: AGRANULOCYTOSIS
     Dosage: 350 MG IV
     Route: 042
     Dates: start: 20040406, end: 20040410
  7. CEFTRIAXZONE SODIUM [Suspect]
     Indication: AGRANULOCYTOSIS
     Dosage: 2 G INJ
     Dates: start: 20040406, end: 20040410
  8. TRETINOIN [Suspect]
     Dosage: 50 MG PO
     Route: 048
     Dates: start: 20040407
  9. ALLOPURINOL [Concomitant]
  10. FLUOXETINE [Concomitant]
  11. MEROPENEM [Concomitant]
  12. ONDANSETRON [Concomitant]
  13. METOCLOPRAMIDE [Concomitant]
  14. OMEPRAZOLE [Concomitant]
  15. PROMETHAZINE [Concomitant]
  16. ONDANSETRON [Concomitant]

REACTIONS (5)
  - DISSEMINATED INTRAVASCULAR COAGULATION [None]
  - HAEMODIALYSIS [None]
  - MULTI-ORGAN FAILURE [None]
  - PULMONARY OEDEMA [None]
  - RESPIRATORY DISTRESS [None]
